FAERS Safety Report 15258287 (Version 1)
Quarter: 2018Q4

REPORT INFORMATION
  Report Type: Spontaneous
  Country: RU (occurrence: RU)
  Receive Date: 20180809
  Receipt Date: 20180809
  Transmission Date: 20190204
  Serious: Yes (Hospitalization, Other)
  Sender: FDA-Public Use
  Company Number: RU-LUPIN LIMITED-2018-00564

PATIENT
  Age: 47 Year
  Sex: Male
  Weight: 67 kg

DRUGS (12)
  1. ISONIAZIDE [Suspect]
     Active Substance: ISONIAZID
     Indication: TUBERCULOSIS
     Dosage: 600 MG, UNK
     Route: 048
     Dates: start: 20171229, end: 20180116
  2. OMEPRAZOLE. [Concomitant]
     Active Substance: OMEPRAZOLE
     Indication: ULCER
     Dosage: 1 DF, BID
     Route: 048
     Dates: start: 20171229
  3. ETHAMBUTOL [Suspect]
     Active Substance: ETHAMBUTOL HYDROCHLORIDE
     Indication: TUBERCULOSIS
     Dosage: 400 MG, UNK
     Route: 048
     Dates: start: 20171229, end: 20180116
  4. AMBROXOL [Concomitant]
     Active Substance: AMBROXOL
     Indication: PRODUCTIVE COUGH
     Dosage: 1 DF, TID
     Route: 048
     Dates: start: 20180110
  5. ALFA-TOCOPHEROL ACETATE [Concomitant]
     Indication: ANTIOXIDANT THERAPY
     Dosage: 200 MG, UNK
     Route: 048
     Dates: start: 20171229
  6. LOPERAMIDE [Concomitant]
     Active Substance: LOPERAMIDE
     Indication: DIARRHOEA
     Dosage: 4 MG, QID
     Route: 065
     Dates: start: 20180103, end: 20180113
  7. RIFAMPICIN [Suspect]
     Active Substance: RIFAMPIN
     Indication: TUBERCULOSIS
     Dosage: 600 MG, UNK
     Route: 048
     Dates: start: 20171229, end: 20180116
  8. PYRAZINAMIDE. [Suspect]
     Active Substance: PYRAZINAMIDE
     Indication: TUBERCULOSIS
     Dosage: 1500 MG, UNK
     Route: 065
     Dates: start: 20171229, end: 20180116
  9. COMBUTOL 600 MG FILM-COATED TABLETS [Suspect]
     Active Substance: ETHAMBUTOL HYDROCHLORIDE
     Indication: TUBERCULOSIS
     Dosage: 1200 MG, UNK
     Route: 048
     Dates: start: 20171229, end: 20180116
  10. PYRIDOXINE [Concomitant]
     Active Substance: PYRIDOXINE
     Indication: PROPHYLAXIS
     Dosage: UNK (5 % - 1.0 ML)
     Route: 058
     Dates: start: 20171229
  11. FLUCONAZOLE. [Concomitant]
     Active Substance: FLUCONAZOLE
     Indication: ANTIFUNGAL TREATMENT
     Dosage: 150 MG, UNK
     Route: 048
     Dates: start: 20171229, end: 20180104
  12. CEFTRIAXONE. [Concomitant]
     Active Substance: CEFTRIAXONE
     Indication: ANTIBIOTIC THERAPY
     Dosage: 2.0 G, UNK
     Route: 030
     Dates: start: 20180103, end: 20180114

REACTIONS (3)
  - Decreased appetite [Recovering/Resolving]
  - Jaundice [Recovering/Resolving]
  - Ocular icterus [Recovering/Resolving]

NARRATIVE: CASE EVENT DATE: 20180115
